FAERS Safety Report 19647446 (Version 1)
Quarter: 2021Q3

REPORT INFORMATION
  Report Type: Spontaneous
  Country: DE (occurrence: DE)
  Receive Date: 20210802
  Receipt Date: 20210802
  Transmission Date: 20211014
  Serious: Yes (Other)
  Sender: FDA-Public Use
  Company Number: NVSC2021DE170041

PATIENT
  Age: 60 Year
  Sex: Female

DRUGS (2)
  1. AZARGA [Suspect]
     Active Substance: BRINZOLAMIDE\TIMOLOL MALEATE
     Indication: OCULAR HYPERTENSION
     Dosage: 2 DRP, QD (1 DROP IN THE MORNING AT 9:30 AND 1 DROP IN THE EVENING AT 21:30 IN BOTH EYES)
     Route: 047
     Dates: end: 20210713
  2. LUMIGAN [Concomitant]
     Active Substance: BIMATOPROST
     Indication: PRODUCT USED FOR UNKNOWN INDICATION
     Dosage: 2 DRP, QD (1 DROP IN BOTH EYES AT NIGHT; USED SINCE 2 AND A HALF YEARS)
     Route: 047

REACTIONS (1)
  - Arrhythmia [Unknown]

NARRATIVE: CASE EVENT DATE: 20210625
